FAERS Safety Report 9495981 (Version 1)
Quarter: 2013Q3

REPORT INFORMATION
  Report Type: Spontaneous
  Country: US (occurrence: US)
  Receive Date: 20130904
  Receipt Date: 20130904
  Transmission Date: 20140515
  Serious: No
  Sender: FDA-Public Use
  Company Number: US-B.I. PHARMACEUTICALS,INC./RIDGEFIELD-2013-BI-26151BP

PATIENT
  Age: 65 Year
  Sex: Female
  Weight: 48 kg

DRUGS (5)
  1. ZANTAC 150 (RANITIDINE HYDROCHLORIDE) [Suspect]
     Indication: DYSPEPSIA
     Dosage: 150 MG
     Route: 048
     Dates: start: 20130820
  2. CELEXA [Concomitant]
     Indication: DEPRESSION
     Dosage: 20 MG
     Route: 048
     Dates: start: 2003
  3. TRAMADOL [Concomitant]
     Indication: OSTEOPOROSIS
     Dosage: 100 MG
     Route: 048
     Dates: start: 2009
  4. LIPITOR [Concomitant]
     Indication: BLOOD CHOLESTEROL INCREASED
     Dosage: 80 MG
     Route: 048
     Dates: start: 2003
  5. VITAMIN D [Concomitant]
     Indication: VITAMIN D DECREASED
     Route: 048
     Dates: start: 2008

REACTIONS (2)
  - Muscular weakness [Not Recovered/Not Resolved]
  - Dysarthria [Recovered/Resolved]
